FAERS Safety Report 4523262-9 (Version None)
Quarter: 2004Q4

REPORT INFORMATION
  Report Type: 
  Country: None (occurrence: None)
  Receive Date: 20041130
  Receipt Date: 20041116
  Transmission Date: 20050328
  Serious: Yes (Other)
  Sender: FDA-Public Use
  Company Number: 601643

PATIENT
  Age: 22 Year
  Sex: Male

DRUGS (2)
  1. RECOMBINATE [Suspect]
     Indication: FACTOR VIII DEFICIENCY
     Dosage: INTRAVENOUS
     Route: 042
     Dates: start: 20040201
  2. HEMATE [Suspect]
     Indication: FACTOR VIII DEFICIENCY
     Dosage: INTRAVENOUS
     Route: 042
     Dates: start: 20040201

REACTIONS (2)
  - ANTI FACTOR VIII ANTIBODY POSITIVE [None]
  - INTRA-ABDOMINAL HAEMORRHAGE [None]
